FAERS Safety Report 17797535 (Version 1)
Quarter: 2020Q2

REPORT INFORMATION
  Report Type: Spontaneous
  Country: ES (occurrence: ES)
  Receive Date: 20200518
  Receipt Date: 20200518
  Transmission Date: 20200714
  Serious: Yes (Hospitalization)
  Sender: FDA-Public Use
  Company Number: NVSC2020ES133415

PATIENT
  Age: 29 Year
  Sex: Male

DRUGS (8)
  1. OLANZAPINE. [Suspect]
     Active Substance: OLANZAPINE
     Indication: PRODUCT USED FOR UNKNOWN INDICATION
     Dosage: 30 MG
     Route: 065
     Dates: start: 2017
  2. ARIPIPRAZOLE. [Suspect]
     Active Substance: ARIPIPRAZOLE
     Dosage: 600 MG, SUSPENSION FOR INJECTION
     Route: 065
  3. OLANZAPINE. [Suspect]
     Active Substance: OLANZAPINE
     Dosage: 405 MG
     Route: 065
     Dates: start: 2017
  4. ARIPIPRAZOLE. [Suspect]
     Active Substance: ARIPIPRAZOLE
     Indication: SCHIZOPHRENIA
     Dosage: UNK
     Route: 065
     Dates: start: 2008
  5. RISPERIDONE. [Concomitant]
     Active Substance: RISPERIDONE
     Indication: PRODUCT USED FOR UNKNOWN INDICATION
     Dosage: UNK
     Route: 065
  6. ARIPIPRAZOLE. [Suspect]
     Active Substance: ARIPIPRAZOLE
     Indication: ACUTE PSYCHOSIS
     Dosage: 400 MG (SUSPENSION FOR INJECTION)
     Route: 065
  7. OLANZAPINE. [Suspect]
     Active Substance: OLANZAPINE
     Dosage: 300 MG
     Route: 065
     Dates: start: 2018
  8. ABILIFY [Suspect]
     Active Substance: ARIPIPRAZOLE
     Indication: SCHIZOPHRENIA
     Dosage: 7.5 MG/ML, Q8H
     Route: 030

REACTIONS (12)
  - Sedation [Unknown]
  - Schizophrenia [Unknown]
  - Drug abuse [Unknown]
  - Psychotic disorder [Unknown]
  - Product use in unapproved indication [Unknown]
  - Mania [Unknown]
  - Restlessness [Unknown]
  - Schizoaffective disorder [Unknown]
  - Psychotic disorder [Unknown]
  - Overdose [Unknown]
  - Schizophrenia [Unknown]
  - Mania [Unknown]

NARRATIVE: CASE EVENT DATE: 200810
